FAERS Safety Report 17499642 (Version 5)
Quarter: 2020Q2

REPORT INFORMATION
  Report Type: Report from Study
  Country: PH (occurrence: PH)
  Receive Date: 20200304
  Receipt Date: 20200616
  Transmission Date: 20200713
  Serious: Yes (Hospitalization, Other)
  Sender: FDA-Public Use
  Company Number: PH-SEATTLE GENETICS-2020SGN01360

PATIENT
  Sex: Male

DRUGS (1)
  1. BRENTUXIMAB VEDOTIN [Suspect]
     Active Substance: BRENTUXIMAB VEDOTIN
     Indication: CUTANEOUS T-CELL LYMPHOMA
     Dosage: 50 MILLIGRAM
     Route: 042
     Dates: start: 20190926

REACTIONS (5)
  - Measles [Unknown]
  - Inappropriate schedule of product administration [Unknown]
  - Cough [Unknown]
  - Cutaneous T-cell lymphoma [Unknown]
  - Pneumonia [Recovering/Resolving]
